FAERS Safety Report 26102246 (Version 1)
Quarter: 2025Q4

REPORT INFORMATION
  Report Type: Spontaneous
  Country: EU (occurrence: EU)
  Receive Date: 20251128
  Receipt Date: 20251128
  Transmission Date: 20260117
  Serious: Yes (Death)
  Sender: TEVA
  Company Number: None

PATIENT
  Age: 75 Year
  Sex: Female

DRUGS (2)
  1. FLUOXETINE [Suspect]
     Active Substance: FLUOXETINE HYDROCHLORIDE
     Indication: Poisoning deliberate
     Dosage: FLUOXETINE BASE
     Route: 048
     Dates: start: 20241228, end: 20241228
  2. NORDAZEPAM [Suspect]
     Active Substance: NORDAZEPAM
     Indication: Poisoning deliberate
     Route: 048
     Dates: start: 20241228, end: 20241228

REACTIONS (1)
  - Poisoning deliberate [Fatal]

NARRATIVE: CASE EVENT DATE: 20241228
